FAERS Safety Report 22279244 (Version 1)
Quarter: 2023Q2

REPORT INFORMATION
  Report Type: Spontaneous
  Country: US (occurrence: None)
  Receive Date: 20230502
  Receipt Date: 20230502
  Transmission Date: 20230721
  Serious: No
  Sender: FDA-Public Use
  Company Number: None

PATIENT
  Age: 67 Year
  Sex: Male
  Weight: 96.62 kg

DRUGS (13)
  1. PEGASYS [Suspect]
     Active Substance: PEGINTERFERON ALFA-2A
     Indication: T-cell lymphoma
     Dosage: FREQUENCY : WEEKLY;?
     Route: 058
     Dates: start: 202301, end: 20230411
  2. ASPIRIN [Concomitant]
     Active Substance: ASPIRIN
  3. CLOPIDOGREL [Concomitant]
     Active Substance: CLOPIDOGREL BISULFATE
  4. DEXAMETHASONE [Concomitant]
  5. DOXYCYCLINE [Concomitant]
     Active Substance: DOXYCYCLINE
  6. FOLIC ACID [Concomitant]
     Active Substance: FOLIC ACID
  7. FUROSEMIDE [Concomitant]
     Active Substance: FUROSEMIDE
  8. GABAPENTIN [Concomitant]
  9. GLIPIZIDE [Concomitant]
  10. KLOR-CON [Concomitant]
  11. METHOTREXATE [Concomitant]
     Active Substance: METHOTREXATE
  12. TRIAMCINOLONE [Concomitant]
     Active Substance: TRIAMCINOLONE
  13. TYLENOL [Concomitant]

REACTIONS (2)
  - Disease progression [None]
  - T-cell lymphoma [None]
